FAERS Safety Report 9642160 (Version 4)
Quarter: 2014Q4

REPORT INFORMATION
  Report Type: Report from Study
  Country: FR (occurrence: FR)
  Receive Date: 20131023
  Receipt Date: 20141120
  Transmission Date: 20150529
  Serious: Yes (Hospitalization, Other)
  Sender: FDA-Public Use
  Company Number: FR-ROCHE-1288630

PATIENT
  Age: 59 Year
  Sex: Female
  Weight: 46 kg

DRUGS (17)
  1. CANDESARTAN [Concomitant]
     Active Substance: CANDESARTAN
     Dosage: DAILY
     Route: 065
     Dates: end: 20130626
  2. EMLA [Concomitant]
     Active Substance: LIDOCAINE\PRILOCAINE
     Route: 065
     Dates: start: 20080111
  3. DIPROSONE [Concomitant]
     Active Substance: BETAMETHASONE DIPROPIONATE
     Route: 065
     Dates: start: 20130727
  4. ESTREVA [Concomitant]
     Active Substance: ESTRADIOL
     Route: 065
     Dates: start: 20130807
  5. DEXERYL (FRANCE) [Concomitant]
     Active Substance: GLYCERIN\PARAFFIN
     Route: 065
     Dates: start: 20130904
  6. RESIKALI [Concomitant]
     Route: 065
     Dates: start: 20130708
  7. METHOXY POLYETHYLENE GLYCOL-EPOETIN BETA [Suspect]
     Active Substance: PEGZEREPOETIN ALFA
     Indication: NEPHROGENIC ANAEMIA
     Route: 042
     Dates: start: 20100604
  8. METHOXY POLYETHYLENE GLYCOL-EPOETIN BETA [Suspect]
     Active Substance: PEGZEREPOETIN ALFA
     Route: 042
     Dates: start: 20131009
  9. INEXIUM [Concomitant]
     Active Substance: ESOMEPRAZOLE
     Dosage: DAILY
     Route: 065
     Dates: start: 20070820
  10. KARDEGIC [Concomitant]
     Active Substance: ASPIRIN LYSINE
     Dosage: DAILY
     Route: 065
     Dates: start: 20121122
  11. LEVOCARNIL [Concomitant]
     Active Substance: LEVOCARNITINE
     Route: 065
     Dates: start: 20110311
  12. LOVENOX [Concomitant]
     Active Substance: ENOXAPARIN SODIUM
     Route: 065
     Dates: start: 20131005
  13. TAHOR [Concomitant]
     Active Substance: ATORVASTATIN CALCIUM
     Dosage: DAILY
     Route: 065
     Dates: start: 20080111
  14. PREVISCAN (FRANCE) [Concomitant]
     Active Substance: FLUINDIONE
     Dosage: DAILY
     Route: 065
     Dates: start: 20111019, end: 20131005
  15. XALATAN [Concomitant]
     Active Substance: LATANOPROST
     Route: 065
     Dates: start: 20120201
  16. CARDENSIEL [Concomitant]
     Active Substance: BISOPROLOL FUMARATE
     Dosage: DAILY
     Route: 065
     Dates: start: 20120425
  17. LEVOTHYROX [Concomitant]
     Active Substance: LEVOTHYROXINE
     Dosage: DAILY
     Route: 065
     Dates: start: 20090415

REACTIONS (3)
  - Anaemia [Recovered/Resolved]
  - Invasive lobular breast carcinoma [Recovered/Resolved with Sequelae]
  - Haematoma infection [Recovered/Resolved]

NARRATIVE: CASE EVENT DATE: 20130827
